FAERS Safety Report 5144807-4 (Version None)
Quarter: 2006Q4

REPORT INFORMATION
  Report Type: 
  Country: None (occurrence: None)
  Receive Date: 20061103
  Receipt Date: 20061103
  Transmission Date: 20070319
  Serious: Yes (Hospitalization)
  Sender: FDA-Public Use
  Company Number: None

PATIENT
  Sex: Female
  Weight: 46 kg

DRUGS (14)
  1. CETUXIMAB, 250MG/M2, BRISTOL MEYERS SQUIBB [Suspect]
     Indication: CERVIX CARCINOMA
     Dosage: 390 MG WEEKLY IV
     Route: 042
     Dates: start: 20060907, end: 20060928
  2. CETUXIMAB, 250MG/M2, BRISTOL MEYERS SQUIBB [Suspect]
     Indication: CERVIX CARCINOMA
     Dosage: 360 MG WEEKLY IV
     Route: 042
     Dates: start: 20061005, end: 20061013
  3. BIMATOPROST [Concomitant]
  4. DOXYCYCLINE [Concomitant]
  5. CLINDAMYCIN [Concomitant]
  6. POTASSIUM CHLORIDE [Concomitant]
  7. OMEPRAZOLE [Concomitant]
  8. LOPERAMIDE [Concomitant]
  9. ALUMINUM WITH MAGNESIUM HYDROXIDE [Concomitant]
  10. ACETAMINOPHEN [Concomitant]
  11. HYDROCORTISONE ACETATE [Concomitant]
  12. LORAZEPAM [Concomitant]
  13. IBUPROFEN [Concomitant]
  14. PROCHLORPERAZINE [Concomitant]

REACTIONS (3)
  - ANAEMIA [None]
  - ASTHENIA [None]
  - DIARRHOEA [None]
